FAERS Safety Report 22955399 (Version 4)
Quarter: 2023Q4

REPORT INFORMATION
  Report Type: Report from Study
  Country: SG (occurrence: SG)
  Receive Date: 20230918
  Receipt Date: 20231120
  Transmission Date: 20240109
  Serious: Yes (Hospitalization)
  Sender: FDA-Public Use
  Company Number: SG-GENMAB-2023-01652

PATIENT
  Age: 52 Year
  Sex: Female
  Weight: 43.5 kg

DRUGS (41)
  1. EPCORITAMAB [Suspect]
     Active Substance: EPCORITAMAB
     Indication: Diffuse large B-cell lymphoma stage II
     Dosage: C1D1
     Route: 058
     Dates: start: 20230807, end: 20230807
  2. EPCORITAMAB [Suspect]
     Active Substance: EPCORITAMAB
     Dosage: C1D8
     Route: 058
     Dates: start: 20230814, end: 20230814
  3. EPCORITAMAB [Suspect]
     Active Substance: EPCORITAMAB
     Dosage: C1D15 - C1D22
     Route: 058
     Dates: start: 20230828, end: 20230904
  4. ACETAMINOPHEN [Concomitant]
     Active Substance: ACETAMINOPHEN
     Indication: Premedication
     Dosage: 1 GRAM, SINGLE
     Route: 048
     Dates: start: 20230904, end: 20230904
  5. BENADRYL [Concomitant]
     Active Substance: DIPHENHYDRAMINE HYDROCHLORIDE
     Indication: Premedication
     Dosage: 25 MILLIGRAM, SINGLE
     Route: 042
     Dates: start: 20230904, end: 20230904
  6. DEXAMETHASONE [Concomitant]
     Active Substance: DEXAMETHASONE
     Indication: Premedication
     Dosage: 15 MILLIGRAM, QD
     Route: 048
     Dates: start: 20230815, end: 20230817
  7. DEXAMETHASONE [Concomitant]
     Active Substance: DEXAMETHASONE
     Indication: Prophylaxis
     Dosage: 15 MILLIGRAM, QD
     Route: 048
     Dates: start: 20230829, end: 20230831
  8. DEXAMETHASONE [Concomitant]
     Active Substance: DEXAMETHASONE
     Dosage: 15 MILLIGRAM, SINGLE
     Route: 048
     Dates: start: 20230904, end: 20230904
  9. DEXAMETHASONE [Concomitant]
     Active Substance: DEXAMETHASONE
     Dosage: 15 MILLIGRAM, QD
     Route: 048
     Dates: start: 20230905, end: 20230907
  10. ACYCLOVIR [Concomitant]
     Active Substance: ACYCLOVIR
     Indication: Prophylaxis
     Dosage: 400 MILLIGRAM, BID
     Route: 048
     Dates: start: 202210
  11. CIPROFLOXACIN [Concomitant]
     Active Substance: CIPROFLOXACIN
     Indication: Prophylaxis
     Dosage: 500 MILLIGRAM, BID
     Route: 048
     Dates: start: 20230824, end: 20230828
  12. ALLOPURINOL [Concomitant]
     Active Substance: ALLOPURINOL
     Indication: Prophylaxis
     Dosage: 100 MILLIGRAM, QD
     Route: 048
     Dates: start: 20230807
  13. COTRIMOXAZOLE [Concomitant]
     Active Substance: SULFAMETHOXAZOLE\TRIMETHOPRIM
     Indication: Prophylaxis
     Dosage: 960 MILLIGRAM, 3 TIMES PER WEEK (MON, WED, FRI)
     Route: 048
     Dates: start: 202210
  14. LACTULOSE [Concomitant]
     Active Substance: LACTULOSE
     Indication: Prophylaxis
     Dosage: 10 MILLILITER, TID
     Route: 048
     Dates: start: 20230821, end: 20230831
  15. MAGNESIUM [Concomitant]
     Active Substance: MAGNESIUM
     Indication: Prophylaxis
     Dosage: 300 MILLIGRAM (CAPSULE/TABLET), BID
     Route: 048
     Dates: start: 20230819, end: 20230825
  16. MAGNESIUM SULFATE [Concomitant]
     Active Substance: MAGNESIUM SULFATE\MAGNESIUM SULFATE HEPTAHYDRATE
     Indication: Cytokine release syndrome
     Dosage: 5 MILLILITER (2 MMOL/ML), INTERMITTENT
     Route: 042
     Dates: start: 20230818, end: 20230818
  17. MAGNESIUM SULFATE [Concomitant]
     Active Substance: MAGNESIUM SULFATE\MAGNESIUM SULFATE HEPTAHYDRATE
     Indication: Prophylaxis
     Dosage: 5 MILLILITER (2 MMOL/ML), INTERMITTENT
     Route: 042
     Dates: start: 20230820, end: 20230820
  18. MAGNESIUM SULFATE [Concomitant]
     Active Substance: MAGNESIUM SULFATE\MAGNESIUM SULFATE HEPTAHYDRATE
     Dosage: 5 MILLILITER (2 MMOL/ML), INTERMITTENT
     Route: 042
     Dates: start: 20230825, end: 20230825
  19. MAGNESIUM SULFATE [Concomitant]
     Active Substance: MAGNESIUM SULFATE\MAGNESIUM SULFATE HEPTAHYDRATE
     Dosage: 5 MILLILITER (2 MMOL/ML), INTERMITTENT
     Route: 042
     Dates: start: 20230828, end: 20230828
  20. MAGNESIUM SULFATE [Concomitant]
     Active Substance: MAGNESIUM SULFATE\MAGNESIUM SULFATE HEPTAHYDRATE
     Dosage: 5 MILLILITER (2 MMOL/ML), INTERMITTENT
     Route: 042
     Dates: start: 20230830, end: 20230830
  21. MORPHINE SULFATE [Concomitant]
     Active Substance: MORPHINE SULFATE
     Indication: Pain management
     Dosage: 2.5 MILLIGRAM (CAPSULE/TABLET), SINGLE
     Route: 048
     Dates: start: 20230829, end: 20230829
  22. POTASSIUM CHLORIDE [Concomitant]
     Active Substance: POTASSIUM CHLORIDE
     Indication: Cytokine release syndrome
     Dosage: 1.2 GRAM (SUSTAINED RELEASE TABLET), SINGLE
     Route: 048
     Dates: start: 20230819, end: 20230819
  23. POTASSIUM CHLORIDE [Concomitant]
     Active Substance: POTASSIUM CHLORIDE
     Indication: Prophylaxis
     Dosage: 1.2 GRAM (SUSTAINED RELEASE TABLET), BID
     Route: 048
     Dates: start: 20230819, end: 20230821
  24. POTASSIUM CHLORIDE [Concomitant]
     Active Substance: POTASSIUM CHLORIDE
     Dosage: 200 MILLILITER (PREMIXED IN WFI) 10MMOL/100ML, INTERMITTENT
     Route: 042
     Dates: start: 20230829, end: 20230829
  25. PREGABALIN [Concomitant]
     Active Substance: PREGABALIN
     Indication: Prophylaxis
     Dosage: 75 MILLIGRAM, EVERY NIGHT (QN)
     Route: 048
     Dates: start: 20230829, end: 20230830
  26. TRAMADOL HCL [Concomitant]
     Active Substance: TRAMADOL HYDROCHLORIDE
     Indication: Pain management
     Dosage: 25 MILLIGRAM (TABLET/CAPSULE), SINGLE
     Route: 048
     Dates: start: 20230825, end: 20230825
  27. TRAMADOL HCL [Concomitant]
     Active Substance: TRAMADOL HYDROCHLORIDE
     Indication: Pain management
     Dosage: 50 MILLIGRAM (TABLET/CAPSULE), SINGLE
     Route: 048
     Dates: start: 20230825, end: 20230825
  28. TRAMADOL HCL [Concomitant]
     Active Substance: TRAMADOL HYDROCHLORIDE
     Dosage: 50 MILLIGRAM (TABLET/CAPSULE), TID
     Route: 048
     Dates: start: 20230825, end: 20230829
  29. TRAMADOL HCL [Concomitant]
     Active Substance: TRAMADOL HYDROCHLORIDE
     Dosage: 50 MILLIGRAM (TABLET/CAPSULE), TID
     Route: 048
     Dates: start: 20230829, end: 20230831
  30. TRAMADOL HCL [Concomitant]
     Active Substance: TRAMADOL HYDROCHLORIDE
     Dosage: 50 MILLIGRAM (TABLET/CAPSULE), Q8H
     Route: 048
     Dates: start: 20230830, end: 20230831
  31. METOCLOPRAMIDE HYDROCHLORIDE [Concomitant]
     Active Substance: METOCLOPRAMIDE HYDROCHLORIDE
     Indication: Prophylaxis
     Dosage: 10 MILLIGRAM,SINGLE
     Route: 048
     Dates: start: 20230825, end: 20230825
  32. FILGRASTIM [Concomitant]
     Active Substance: FILGRASTIM
     Dosage: 300 MICROGRAM, SINGLE
     Route: 058
     Dates: start: 20230819, end: 20230819
  33. FILGRASTIM [Concomitant]
     Active Substance: FILGRASTIM
     Dosage: 300 MICROGRAM, SINGLE
     Route: 058
     Dates: start: 20230820, end: 20230820
  34. FILGRASTIM [Concomitant]
     Active Substance: FILGRASTIM
     Dosage: 300 MICROGRAM, SINGLE
     Route: 058
     Dates: start: 20230822, end: 20230822
  35. FILGRASTIM [Concomitant]
     Active Substance: FILGRASTIM
     Dosage: 300 MICROGRAM, PRN
     Route: 058
     Dates: start: 20230824, end: 20230829
  36. MEROPENEM [Concomitant]
     Active Substance: MEROPENEM
     Indication: Cytokine release syndrome
     Dosage: 1 GRAM, SINGLE
     Route: 042
     Dates: start: 20230818, end: 20230818
  37. MEROPENEM [Concomitant]
     Active Substance: MEROPENEM
     Dosage: 1 GRAM, Q12H
     Route: 042
     Dates: start: 20230819, end: 20230822
  38. MEROPENEM [Concomitant]
     Active Substance: MEROPENEM
     Dosage: 1 GRAM, Q8H
     Route: 042
     Dates: start: 20230822, end: 20230824
  39. ACTEMRA [Concomitant]
     Active Substance: TOCILIZUMAB
     Indication: Cytokine release syndrome
     Dosage: 350 MILLGRAM, SINGLE
     Route: 042
     Dates: start: 20230822, end: 20230822
  40. ACETAMINOPHEN [Concomitant]
     Active Substance: ACETAMINOPHEN
     Indication: Cytokine release syndrome
     Dosage: 1 GRAM (TABLET), QID
     Route: 048
     Dates: start: 20230822, end: 20230823
  41. ACETAMINOPHEN [Concomitant]
     Active Substance: ACETAMINOPHEN
     Indication: Prophylaxis
     Dosage: 1 GRAM, QID
     Route: 048
     Dates: start: 20230824, end: 20230831

REACTIONS (2)
  - Bacteraemia [Recovered/Resolved]
  - Cytokine release syndrome [Recovered/Resolved]

NARRATIVE: CASE EVENT DATE: 20230908
